FAERS Safety Report 15725455 (Version 1)
Quarter: 2018Q4

REPORT INFORMATION
  Report Type: Spontaneous
  Country: DE (occurrence: DE)
  Receive Date: 20181215
  Receipt Date: 20181215
  Transmission Date: 20190205
  Serious: Yes (Death, Life-Threatening)
  Sender: FDA-Public Use
  Company Number: DE-TEVA-2018-DE-986377

PATIENT
  Age: 82 Year
  Sex: Male
  Weight: 88 kg

DRUGS (5)
  1. RIVAROXABAN [Concomitant]
     Active Substance: RIVAROXABAN
     Indication: ATRIAL FIBRILLATION
     Route: 048
     Dates: start: 2017
  2. METOPROLOL. [Concomitant]
     Active Substance: METOPROLOL
     Indication: ATRIAL FIBRILLATION
     Route: 048
     Dates: start: 2017
  3. PANTOPRAZOL [Concomitant]
     Active Substance: PANTOPRAZOLE SODIUM
     Indication: GASTROOESOPHAGEAL REFLUX DISEASE
     Route: 048
     Dates: start: 2017
  4. TORASEMID [Concomitant]
     Active Substance: TORSEMIDE
     Indication: ATRIAL FIBRILLATION
     Route: 048
     Dates: start: 2017
  5. AMIODARON [Suspect]
     Active Substance: AMIODARONE
     Indication: VENTRICULAR TACHYCARDIA
     Route: 048
     Dates: start: 201706, end: 201808

REACTIONS (2)
  - Respiratory failure [Fatal]
  - Diffuse alveolar damage [Fatal]

NARRATIVE: CASE EVENT DATE: 20180812
